FAERS Safety Report 4907322-6 (Version None)
Quarter: 2006Q1

REPORT INFORMATION
  Report Type: 
  Country: None (occurrence: None)
  Receive Date: 20060207
  Receipt Date: 20060127
  Transmission Date: 20060701
  Serious: Yes (Hospitalization, Other)
  Sender: FDA-Public Use
  Company Number: KII-2006-0020983

PATIENT
  Age: 60 Year
  Sex: Male

DRUGS (4)
  1. OXYCODONE HYDROCHLORIDE (SIMILAR TO NDA 20-553) (OXYCODONE HYDROCHLORI [Suspect]
     Indication: BACK PAIN
     Dosage: SEE TEXT, ORAL
     Route: 048
  2. BENZODIAZEPINE DERIVATIVES [Suspect]
     Indication: BACK PAIN
     Dosage: SEE TEXT, ORAL
     Route: 048
  3. BETA BLOCKING AGENTS [Concomitant]
  4. LISINOPRIL [Concomitant]

REACTIONS (8)
  - ACIDOSIS [None]
  - ASPIRATION [None]
  - BACK PAIN [None]
  - BODY TEMPERATURE INCREASED [None]
  - COMA [None]
  - HYPERTENSION [None]
  - MULTIPLE DRUG OVERDOSE [None]
  - ROAD TRAFFIC ACCIDENT [None]
